FAERS Safety Report 8598740-6 (Version None)
Quarter: 2012Q3

REPORT INFORMATION
  Report Type: 
  Country: None (occurrence: None)
  Receive Date: 20120816
  Receipt Date: 19960701
  Transmission Date: 20120928
  Serious: Yes (Hospitalization)
  Sender: FDA-Public Use
  Company Number: US-ROCHE-1100900

PATIENT
  Sex: Male

DRUGS (6)
  1. HEPARIN [Concomitant]
     Dosage: 1000 UNITS
  2. NITROGLYCERIN [Concomitant]
     Route: 042
  3. HEPARIN [Concomitant]
     Dosage: 5000 UNITS
  4. ASPIRIN [Concomitant]
  5. MORPHINE SULFATE [Concomitant]
  6. ACTIVASE [Suspect]
     Indication: ACUTE MYOCARDIAL INFARCTION

REACTIONS (1)
  - ELECTROCARDIOGRAM ST SEGMENT ABNORMAL [None]
